FAERS Safety Report 5690945-7 (Version None)
Quarter: 2008Q2

REPORT INFORMATION
  Report Type: 
  Country: None (occurrence: None)
  Receive Date: 20080401
  Receipt Date: 20080320
  Transmission Date: 20081010
  Serious: Yes (Hospitalization)
  Sender: FDA-Public Use
  Company Number: US-ELI_LILLY_AND_COMPANY-US200802006031

PATIENT
  Sex: Male
  Weight: 120.27 kg

DRUGS (18)
  1. HUMALOG [Suspect]
     Dosage: 10 U, UNK
  2. LANTUS [Concomitant]
     Dosage: 30 U, EACH EVENING
  3. LISINOPRIL [Concomitant]
     Dosage: UNK, DAILY (1/D)
  4. NORVASC [Concomitant]
     Dosage: 5 MG, DAILY (1/D)
  5. SPIRIVA [Concomitant]
     Route: 055
  6. POTASSIUM CHLORIDE [Concomitant]
     Dosage: 10 MEQ, DAILY (1/D)
  7. ADVAIR HFA [Concomitant]
     Route: 055
  8. PRILOSEC [Concomitant]
     Dosage: 20 MG, DAILY (1/D)
  9. COREG [Concomitant]
     Dosage: 25 MG, DAILY (1/D)
  10. PLAVIX [Concomitant]
     Dosage: 75 MG, DAILY (1/D)
  11. ASPIRIN [Concomitant]
     Dosage: 81 MG, DAILY (1/D)
  12. NEURONTIN [Concomitant]
     Dosage: 300 MG, 3/D
  13. CRESTOR [Concomitant]
     Dosage: 10 MG, DAILY (1/D)
  14. CRESTOR [Concomitant]
     Dosage: 0.5 UNK, DAILY (1/D)
  15. METOLAZONE [Concomitant]
     Indication: OEDEMA
     Dosage: 2.5 MG, DAILY (1/D)
  16. METOLAZONE [Concomitant]
     Dosage: 5 MG, UNK
  17. VICODIN [Concomitant]
     Dosage: UNK, AS NEEDED
  18. LEVAQUIN [Concomitant]
     Dosage: 500 MG, DAILY (1/D)

REACTIONS (14)
  - AUTONOMIC NEUROPATHY [None]
  - BLOOD GLUCOSE INCREASED [None]
  - CARDIAC FAILURE CONGESTIVE [None]
  - CHRONIC OBSTRUCTIVE PULMONARY DISEASE [None]
  - EMPHYSEMA [None]
  - HYPERKALAEMIA [None]
  - HYPERTENSION [None]
  - INCORRECT ROUTE OF DRUG ADMINISTRATION [None]
  - OEDEMA [None]
  - RENAL FAILURE CHRONIC [None]
  - RESPIRATORY DISORDER [None]
  - SKIN ULCER [None]
  - STENT PLACEMENT [None]
  - VISUAL ACUITY REDUCED [None]
